FAERS Safety Report 18115469 (Version 1)
Quarter: 2020Q3

REPORT INFORMATION
  Report Type: Spontaneous
  Country: IN (occurrence: IN)
  Receive Date: 20200805
  Receipt Date: 20200805
  Transmission Date: 20201103
  Serious: Yes (Death)
  Sender: FDA-Public Use
  Company Number: NVSC2020IN217679

PATIENT
  Age: 50 Year
  Sex: Male

DRUGS (1)
  1. NEORAL [Suspect]
     Active Substance: CYCLOSPORINE
     Indication: RENAL TRANSPLANT
     Dosage: 50 MG, UNKNOWN
     Route: 065
     Dates: start: 20000725, end: 20200207

REACTIONS (1)
  - Death [Fatal]

NARRATIVE: CASE EVENT DATE: 20200527
